FAERS Safety Report 17415688 (Version 25)
Quarter: 2020Q4

REPORT INFORMATION
  Report Type: Report from Study
  Country: ES (occurrence: ES)
  Receive Date: 20200213
  Receipt Date: 20201110
  Transmission Date: 20210113
  Serious: Yes (Hospitalization)
  Sender: FDA-Public Use
  Company Number: ES-EISAI MEDICAL RESEARCH-EC-2020-070028

PATIENT
  Age: 69 Year
  Sex: Female
  Weight: 60.8 kg

DRUGS (18)
  1. AMLODIPINE [Concomitant]
     Active Substance: AMLODIPINE BESYLATE
     Dates: start: 201910
  2. ATORVASTATIN CALCIUM. [Concomitant]
     Active Substance: ATORVASTATIN CALCIUM
     Dates: start: 201910
  3. ACETAMINOPHEN. [Concomitant]
     Active Substance: ACETAMINOPHEN
     Dates: start: 201812
  4. PEMBROLIZUMAB. [Suspect]
     Active Substance: PEMBROLIZUMAB
     Route: 041
     Dates: start: 20200117, end: 20200117
  5. BROMAZEPAM [Concomitant]
     Active Substance: BROMAZEPAM
     Dates: start: 201812
  6. LAROCHE POSAY CICAPLAST [Concomitant]
     Dates: start: 20191112, end: 20200117
  7. LENVATINIB [Suspect]
     Active Substance: LENVATINIB
     Route: 048
     Dates: start: 20191128, end: 20200207
  8. METFORMIN [Concomitant]
     Active Substance: METFORMIN HYDROCHLORIDE
     Dates: start: 201812
  9. PAROXETINE. [Concomitant]
     Active Substance: PAROXETINE
     Dates: start: 201812
  10. TARDYFERON [Concomitant]
     Active Substance: FERROUS SULFATE
     Dates: start: 201910, end: 20191210
  11. CASENLAX [Concomitant]
     Dates: start: 201910
  12. FORTASEC [Concomitant]
     Active Substance: LOPERAMIDE HYDROCHLORIDE
     Dates: start: 20191105, end: 20191105
  13. PEMBROLIZUMAB. [Suspect]
     Active Substance: PEMBROLIZUMAB
     Indication: ENDOMETRIAL CANCER
     Route: 041
     Dates: start: 20191030, end: 20191030
  14. OMEPRAZOLE. [Concomitant]
     Active Substance: OMEPRAZOLE
     Dates: start: 201812
  15. LENVATINIB [Suspect]
     Active Substance: LENVATINIB
     Indication: ENDOMETRIAL CANCER
     Route: 048
     Dates: start: 20191030, end: 20191111
  16. PEMBROLIZUMAB. [Suspect]
     Active Substance: PEMBROLIZUMAB
     Route: 041
     Dates: start: 20191128, end: 20191227
  17. ADIRO [Concomitant]
     Active Substance: ASPIRIN
     Dates: start: 201910
  18. ENALAPRIL MALEATE. [Concomitant]
     Active Substance: ENALAPRIL MALEATE
     Dates: start: 20191031, end: 20191119

REACTIONS (2)
  - Thrombotic microangiopathy [Recovered/Resolved]
  - Gastroenteritis radiation [Recovered/Resolved]

NARRATIVE: CASE EVENT DATE: 20191118
